FAERS Safety Report 8031002-4 (Version None)
Quarter: 2012Q1

REPORT INFORMATION
  Report Type: 
  Country: None (occurrence: None)
  Receive Date: 20120105
  Receipt Date: 20111223
  Transmission Date: 20120608
  Serious: Yes (Death)
  Sender: FDA-Public Use
  Company Number: 1000025398

PATIENT
  Age: 72 Year
  Sex: Female

DRUGS (9)
  1. LITHIUM CITRATE [Suspect]
     Indication: SCHIZOAFFECTIVE DISORDER
     Dosage: 1+0+0+1.5,ORAL
     Route: 048
     Dates: end: 20111023
  2. CENTYL MED KALIUMKLORID (BENDROFLUMETHAZIDE, POTASSIUM CHLORIDE) [Concomitant]
  3. AMLODIPIN ^ACTAVIS^ (AMLODIPINE BESILATE) [Concomitant]
  4. ESCITALOPRAM OXALATE [Suspect]
     Indication: SCHIZOAFFECTIVE DISORDER
     Dosage: 30 MG (30 MG,1 IN 1 D),ORAL
     Route: 048
     Dates: end: 20111023
  5. ALPRAZOLAM [Concomitant]
  6. FERRO DURETTER (FERROUS GLUCONATE) [Concomitant]
  7. ZIPRASIDONE HYDROCHLORIDE [Suspect]
     Indication: SCHIZOAFFECTIVE DISORDER
     Dosage: 80 MG (40 MG,2 IN 1 D)
     Dates: end: 20111023
  8. MIRTAZAPINE [Suspect]
     Dosage: 30 MG (30 MG,1 IN 1 D),ORAL
     Route: 048
     Dates: end: 20111023
  9. FRAGMIN [Concomitant]

REACTIONS (14)
  - FALL [None]
  - CARDIAC HYPERTROPHY [None]
  - CARDIAC ENZYMES INCREASED [None]
  - HUMERUS FRACTURE [None]
  - RHABDOMYOLYSIS [None]
  - RENAL FAILURE [None]
  - HYPERTENSION [None]
  - HEPATIC CIRRHOSIS [None]
  - NEUROLEPTIC MALIGNANT SYNDROME [None]
  - LACTIC ACIDOSIS [None]
  - ORGAN FAILURE [None]
  - LACUNAR INFARCTION [None]
  - MYOCARDIAL INFARCTION [None]
  - HYPERDYNAMIC LEFT VENTRICLE [None]
